FAERS Safety Report 6788740-0 (Version None)
Quarter: 2010Q2

REPORT INFORMATION
  Report Type: 
  Country: None (occurrence: None)
  Receive Date: 20100623
  Receipt Date: 20080509
  Transmission Date: 20101027
  Serious: No
  Sender: FDA-Public Use
  Company Number: US-PFIZER INC-2008038574

PATIENT
  Sex: Male
  Weight: 95.5 kg

DRUGS (2)
  1. GEODON [Suspect]
     Indication: SCHIZOPHRENIA
     Dates: start: 20050101
  2. ATIVAN [Concomitant]
     Indication: ANXIETY
     Route: 048

REACTIONS (6)
  - BRADYPHRENIA [None]
  - DRUG DOSE OMISSION [None]
  - DRUG INEFFECTIVE [None]
  - INSOMNIA [None]
  - MEMORY IMPAIRMENT [None]
  - SPEECH DISORDER [None]
